FAERS Safety Report 8425069-9 (Version None)
Quarter: 2012Q2

REPORT INFORMATION
  Report Type: 
  Country: None (occurrence: None)
  Receive Date: 20120605
  Receipt Date: 20120605
  Transmission Date: 20120825
  Serious: Yes (Other)
  Sender: FDA-Public Use
  Company Number: None

PATIENT
  Sex: Female
  Weight: 45.4504 kg

DRUGS (1)
  1. NUEDEXTA [Suspect]
     Dosage: 1 P.O. Q DAY
     Dates: start: 20120508, end: 20120514

REACTIONS (1)
  - SPONTANEOUS HAEMATOMA [None]
